FAERS Safety Report 10533387 (Version 1)
Quarter: 2014Q4

REPORT INFORMATION
  Report Type: Spontaneous
  Country: US (occurrence: US)
  Receive Date: 20141022
  Receipt Date: 20141022
  Transmission Date: 20150529
  Serious: No
  Sender: FDA-Public Use
  Company Number: US-PFIZER INC-2014287134

PATIENT
  Age: 57 Year
  Sex: Male
  Weight: 118 kg

DRUGS (4)
  1. CYCLOBENZAPRINE HYDROCHLORIDE. [Concomitant]
     Active Substance: CYCLOBENZAPRINE HYDROCHLORIDE
     Dosage: 10 MG, 2X/DAY
     Route: 048
  2. FELDENE [Concomitant]
     Active Substance: PIROXICAM
     Dosage: 20 MG, 1X/DAY
     Route: 048
  3. NEURONTIN [Suspect]
     Active Substance: GABAPENTIN
     Indication: BACK PAIN
  4. NEURONTIN [Suspect]
     Active Substance: GABAPENTIN
     Indication: SPINAL FUSION SURGERY
     Dosage: UNK

REACTIONS (3)
  - Emotional disorder [Recovered/Resolved]
  - Depression [Recovered/Resolved]
  - Tearfulness [Recovered/Resolved]
